FAERS Safety Report 9458578 (Version 5)
Quarter: 2014Q3

REPORT INFORMATION
  Report Type: Spontaneous
  Country: US (occurrence: None)
  Receive Date: 20130812
  Receipt Date: 20140813
  Transmission Date: 20150326
  Serious: Yes (Other)
  Sender: FDA-Public Use
  Company Number: 2013US002209

PATIENT
  Age: 66 Year
  Sex: Male
  Weight: 100 kg

DRUGS (9)
  1. MAGNESIUM (MAGNESIUM) [Concomitant]
     Active Substance: MAGNESIUM
  2. L-CARNITINE (L-CARNITINE) [Concomitant]
  3. COQ10 (UBIDECARENONE) [Concomitant]
     Active Substance: UBIDECARENONE
  4. CARVEDILOL (CARVEDILOL) [Concomitant]
     Active Substance: CARVEDILOL
  5. IODINE (IODINE) [Concomitant]
  6. ICLUSIG [Suspect]
     Active Substance: PONATINIB
     Indication: CHRONIC MYELOID LEUKAEMIA
     Route: 048
     Dates: start: 20130717, end: 20131106
  7. ALLOPURINOL (ALLOPURINOL) [Concomitant]
     Active Substance: ALLOPURINOL
  8. KELP (KELP) [Concomitant]
  9. LEVOTHYROXINE (LEVOTHYROXINE) [Concomitant]
     Active Substance: LEVOTHYROXINE

REACTIONS (11)
  - Capillary fragility [None]
  - Azotaemia [None]
  - Visual impairment [None]
  - Joint stiffness [None]
  - Haemoglobin decreased [None]
  - Constipation [None]
  - Muscular weakness [None]
  - Eye haemorrhage [None]
  - Vitreous floaters [None]
  - Coagulopathy [None]
  - Platelet count decreased [None]

NARRATIVE: CASE EVENT DATE: 20130719
